FAERS Safety Report 9165781 (Version 1)
Quarter: 2013Q1

REPORT INFORMATION
  Report Type: Spontaneous
  Country: US (occurrence: None)
  Receive Date: 20130314
  Receipt Date: 20130314
  Transmission Date: 20140127
  Serious: Yes (Life-Threatening, Other)
  Sender: FDA-Public Use
  Company Number: None

PATIENT
  Age: 72 Year
  Sex: Female
  Weight: 74.84 kg

DRUGS (1)
  1. MELOXICAM [Suspect]
     Dosage: JAN 10- JAN 30

REACTIONS (2)
  - Thrombosis [None]
  - Gastric disorder [None]
